FAERS Safety Report 7500886-8 (Version None)
Quarter: 2011Q2

REPORT INFORMATION
  Report Type: 
  Country: None (occurrence: None)
  Receive Date: 20110524
  Receipt Date: 20110518
  Transmission Date: 20111010
  Serious: Yes (Disabling)
  Sender: FDA-Public Use
  Company Number: B0716455A

PATIENT
  Sex: Female
  Weight: 38 kg

DRUGS (6)
  1. CARBOPLATIN [Suspect]
     Indication: STEM CELL TRANSPLANT
     Dosage: 400MGM2 PER DAY
     Route: 042
     Dates: start: 20040531, end: 20040603
  2. VEPESID [Suspect]
     Indication: STEM CELL TRANSPLANT
     Dosage: 300MGM2 PER DAY
     Route: 042
     Dates: start: 20040531, end: 20040603
  3. ALKERAN [Suspect]
     Indication: STEM CELL TRANSPLANT
     Dosage: 90MGM2 PER DAY
     Route: 042
     Dates: start: 20040604, end: 20040605
  4. FRAGMIN [Concomitant]
     Dosage: .5ML PER DAY
     Route: 042
     Dates: start: 20040605, end: 20040622
  5. ZOFRAN [Concomitant]
     Dosage: 4MG PER DAY
     Route: 042
     Dates: end: 20040611
  6. NEUTROGIN [Concomitant]
     Dates: start: 20040616, end: 20040620

REACTIONS (2)
  - LIVER DISORDER [None]
  - PYREXIA [None]
